FAERS Safety Report 9597119 (Version 1)
Quarter: 2013Q4

REPORT INFORMATION
  Report Type: Spontaneous
  Country: US (occurrence: US)
  Receive Date: 20131004
  Receipt Date: 20131004
  Transmission Date: 20140711
  Serious: Yes (Other)
  Sender: FDA-Public Use
  Company Number: US-ASTRAZENECA-2013SE72314

PATIENT
  Age: 85 Year
  Sex: Female
  Weight: 57.2 kg

DRUGS (2)
  1. ARIMIDEX [Suspect]
     Indication: BREAST CANCER FEMALE
     Dosage: DAILY
     Route: 048
     Dates: start: 2003, end: 2010
  2. FASLODEX [Suspect]
     Indication: BREAST CANCER METASTATIC
     Route: 030
     Dates: start: 201208

REACTIONS (9)
  - Breast cancer metastatic [Unknown]
  - Herpes zoster [Unknown]
  - Dry throat [Unknown]
  - Weight decreased [Unknown]
  - Myalgia [Unknown]
  - Bone pain [Unknown]
  - Fibromyalgia [Unknown]
  - Nausea [Unknown]
  - Fatigue [Unknown]
